FAERS Safety Report 7909386-4 (Version None)
Quarter: 2011Q4

REPORT INFORMATION
  Report Type: 
  Country: None (occurrence: None)
  Receive Date: 20111111
  Receipt Date: 20111103
  Transmission Date: 20120403
  Serious: Yes (Life-Threatening, Other)
  Sender: FDA-Public Use
  Company Number: DE-UCBSA-041239

PATIENT
  Age: 70 Year
  Sex: Male
  Weight: 113 kg

DRUGS (16)
  1. NEXIUM [Concomitant]
     Indication: GASTROOESOPHAGEAL REFLUX DISEASE
     Dosage: EVENING
     Route: 048
  2. PROMETHAZINE [Concomitant]
     Route: 048
  3. MAGNESIUM [Concomitant]
     Dosage: 300
  4. ASPIRIN [Concomitant]
     Indication: HYPERTENSION
     Route: 048
  5. TORSEMIDE [Concomitant]
  6. SALBU SPRAY [Concomitant]
     Dosage: AS NEEDED
  7. DIOVAN [Concomitant]
     Dosage: 1/2 TABLET
  8. PROMETHAZINE [Concomitant]
     Dosage: AT NIGHT
     Route: 048
  9. CYMBALTA [Concomitant]
     Route: 048
  10. DIOVAN [Concomitant]
  11. AZACYTIDINE [Concomitant]
  12. TAMSULOSIN HCL [Concomitant]
     Indication: PROSTATIC ADENOMA
     Dosage: ONCE IN NOON
     Route: 048
  13. PROMETHAZINE [Concomitant]
     Dosage: ONCE IN THE NOON AND ONCE IN EVENING
     Route: 048
  14. KEPPRA [Suspect]
     Indication: POST-TRAUMATIC EPILEPSY
     Route: 048
     Dates: start: 20050101
  15. IBUPROFEN [Concomitant]
     Dosage: 3X1 AS NEEDED
     Route: 048
  16. VERAMEX [Concomitant]
     Route: 048

REACTIONS (6)
  - TREMOR [None]
  - HAEMOGLOBIN DECREASED [None]
  - COLON CANCER [None]
  - HYPOTENSION [None]
  - ACUTE MYELOID LEUKAEMIA [None]
  - LEUKOPENIA [None]
